FAERS Safety Report 5025977-5 (Version None)
Quarter: 2006Q2

REPORT INFORMATION
  Report Type: 
  Country: None (occurrence: None)
  Receive Date: 20060614
  Receipt Date: 20060411
  Transmission Date: 20061013
  Serious: Yes (Hospitalization)
  Sender: FDA-Public Use
  Company Number: US-BRISTOL-MYERS SQUIBB COMPANY-13344304

PATIENT
  Age: 53 Year
  Sex: Female
  Weight: 62 kg

DRUGS (21)
  1. CARBOPLATIN [Suspect]
     Indication: BREAST CANCER METASTATIC
     Route: 042
     Dates: start: 20060330, end: 20060330
  2. IRINOTECAN [Suspect]
     Indication: BREAST CANCER METASTATIC
     Route: 042
     Dates: start: 20060330, end: 20060330
  3. MULTIVITAMIN [Concomitant]
     Indication: MEDICAL DIET
     Route: 048
     Dates: start: 19950101
  4. IRON SUPPLEMENT [Concomitant]
     Indication: MEDICAL DIET
     Route: 048
     Dates: start: 20040101
  5. DOCUSATE SODIUM [Concomitant]
     Indication: CONSTIPATION
     Route: 048
     Dates: start: 20040101
  6. ATIVAN [Concomitant]
     Indication: PROPHYLAXIS OF NAUSEA AND VOMITING
     Route: 048
     Dates: start: 20050927
  7. CALCIUM GLUCONATE [Concomitant]
     Indication: MEDICAL DIET
     Route: 048
     Dates: start: 20050101
  8. PAXIL [Concomitant]
     Indication: DEPRESSION
     Route: 048
     Dates: start: 20060323
  9. DURAGESIC-100 [Concomitant]
     Indication: PAIN
     Route: 062
     Dates: start: 20060406
  10. DURAGESIC-100 [Concomitant]
     Indication: ARTHRALGIA
     Route: 062
     Dates: start: 20060406
  11. DURAGESIC-100 [Concomitant]
     Indication: MYALGIA
     Route: 062
     Dates: start: 20060406
  12. OXYIR [Concomitant]
     Indication: PAIN
     Route: 048
     Dates: start: 20060216
  13. CLORAZEPATE [Concomitant]
     Indication: RESTLESS LEGS SYNDROME
     Route: 048
     Dates: start: 20060323
  14. MAGNESIUM CITRATE [Concomitant]
     Route: 048
  15. COMPAZINE [Concomitant]
     Indication: PROPHYLAXIS OF NAUSEA AND VOMITING
     Route: 048
     Dates: start: 20050927
  16. ZOFRAN [Concomitant]
     Indication: NAUSEA
     Route: 060
     Dates: start: 20050927
  17. HEPARIN [Concomitant]
     Indication: PROPHYLAXIS
     Route: 042
     Dates: start: 20050927
  18. OXYCONTIN [Concomitant]
     Indication: PAIN
     Route: 048
     Dates: start: 20060216
  19. NEULASTA [Concomitant]
     Indication: NEUTROPENIA
     Route: 058
     Dates: start: 20060317
  20. NEULASTA [Concomitant]
     Indication: LEUKOPENIA
     Route: 058
     Dates: start: 20060317
  21. SENOKOT [Concomitant]
     Route: 048

REACTIONS (2)
  - CONFUSIONAL STATE [None]
  - NEUTROPENIA [None]
